FAERS Safety Report 12936153 (Version 1)
Quarter: 2016Q4

REPORT INFORMATION
  Report Type: Report from Study
  Country: AU (occurrence: AU)
  Receive Date: 20161114
  Receipt Date: 20161114
  Transmission Date: 20170207
  Serious: Yes (Other)
  Sender: FDA-Public Use
  Company Number: AU-ROCHE-1852671

PATIENT
  Age: 72 Year
  Sex: Male

DRUGS (12)
  1. KENACORT A [Concomitant]
     Dosage: SUSPENSION FOR INJECTION OF 10 MG/ ML
     Route: 065
  2. CELESTON [Concomitant]
     Active Substance: BETAMETHASONE
     Route: 065
     Dates: start: 20121212
  3. KARVEZIDE [Concomitant]
     Active Substance: HYDROCHLOROTHIAZIDE\IRBESARTAN
     Indication: HYPERTENSION
     Dosage: 300/25 TABLET
     Route: 065
  4. PARIET [Concomitant]
     Active Substance: RABEPRAZOLE SODIUM
     Indication: GASTROOESOPHAGEAL REFLUX DISEASE
     Dosage: 20 TABLET DAILY
     Route: 065
     Dates: start: 20111216
  5. METHOTREXATE. [Concomitant]
     Active Substance: METHOTREXATE
     Indication: RHEUMATOID ARTHRITIS
     Dosage: 20 MG WEEKLY
     Route: 065
     Dates: start: 20160912
  6. ENDONE [Concomitant]
     Active Substance: OXYCODONE HYDROCHLORIDE
     Route: 048
     Dates: start: 20150112
  7. ISONIAZID. [Concomitant]
     Active Substance: ISONIAZID
     Route: 065
     Dates: start: 20131120
  8. ENDONE [Concomitant]
     Active Substance: OXYCODONE HYDROCHLORIDE
     Route: 065
  9. PLAQUENIL [Concomitant]
     Active Substance: HYDROXYCHLOROQUINE SULFATE
     Dosage: 400 MG TO 600 MG DAILY
     Route: 048
     Dates: start: 20150924
  10. ACTEMRA [Suspect]
     Active Substance: TOCILIZUMAB
     Indication: RHEUMATOID ARTHRITIS
     Route: 042
     Dates: start: 20150421, end: 20160105
  11. MEGAFOL [Concomitant]
     Active Substance: FOLIC ACID
     Indication: RHEUMATOID ARTHRITIS
     Dosage: 5 MG (36 HOURS AFTER THE WEEKLY DOSE OF METHOTREXATE).
     Route: 065
  12. KEFLEX [Concomitant]
     Active Substance: CEPHALEXIN
     Route: 048
     Dates: start: 20160502

REACTIONS (5)
  - Balance disorder [Recovered/Resolved]
  - Fatigue [Recovered/Resolved]
  - Osteoarthritis [Unknown]
  - Night sweats [Recovered/Resolved]
  - Constipation [Recovered/Resolved]

NARRATIVE: CASE EVENT DATE: 201511
